FAERS Safety Report 11056300 (Version 2)
Quarter: 2015Q3

REPORT INFORMATION
  Report Type: Spontaneous
  Country: US (occurrence: US)
  Receive Date: 20150422
  Receipt Date: 20150911
  Transmission Date: 20151125
  Serious: Yes (Hospitalization, Other)
  Sender: FDA-Public Use
  Company Number: US-009507513-1504USA020567

PATIENT
  Sex: Female
  Weight: 131.97 kg

DRUGS (1)
  1. JANUMET [Suspect]
     Active Substance: METFORMIN HYDROCHLORIDE\SITAGLIPTIN PHOSPHATE
     Indication: TYPE 2 DIABETES MELLITUS
     Dosage: 50-1000 MG, BID
     Route: 048
     Dates: start: 20090812, end: 20130703

REACTIONS (9)
  - Hypertension [Unknown]
  - Pancreatic carcinoma [Recovered/Resolved]
  - Cardiac murmur functional [Unknown]
  - Vitamin D deficiency [Unknown]
  - Splenectomy [Unknown]
  - Cardiomegaly [Unknown]
  - Pancreatectomy [Unknown]
  - Iron deficiency anaemia [Not Recovered/Not Resolved]
  - Drug dose omission [Unknown]

NARRATIVE: CASE EVENT DATE: 201302
